FAERS Safety Report 19849286 (Version 1)
Quarter: 2021Q3

REPORT INFORMATION
  Report Type: Report from Study
  Country: ZA (occurrence: ZA)
  Receive Date: 20210917
  Receipt Date: 20210917
  Transmission Date: 20211014
  Serious: Yes (Death, Hospitalization)
  Sender: FDA-Public Use
  Company Number: ZA-VIIV HEALTHCARE LIMITED-ZA2021GSK196173

PATIENT
  Age: 14 Day
  Weight: 2.28 kg

DRUGS (1)
  1. DOLUTEGRAVIR [Suspect]
     Active Substance: DOLUTEGRAVIR
     Indication: HIV INFECTION

REACTIONS (2)
  - Premature baby [Recovered/Resolved]
  - Hiccups [Fatal]

NARRATIVE: CASE EVENT DATE: 20180716
